FAERS Safety Report 10874512 (Version 1)
Quarter: 2015Q1

REPORT INFORMATION
  Report Type: Spontaneous
  Country: CA (occurrence: CA)
  Receive Date: 20150227
  Receipt Date: 20150227
  Transmission Date: 20150721
  Serious: Yes (Other)
  Sender: FDA-Public Use
  Company Number: CA-TEVA-542459USA

PATIENT
  Age: 78 Year
  Sex: Female
  Weight: 46.3 kg

DRUGS (6)
  1. POLYETHYLENE GLYCOL [Concomitant]
     Active Substance: POLYETHYLENE GLYCOLS
     Dosage: 17 GRAM DAILY;
     Route: 048
     Dates: start: 20150107
  2. ACETAMINOPHEN. [Concomitant]
     Active Substance: ACETAMINOPHEN
     Dosage: 1950 MILLIGRAM DAILY;
     Route: 048
     Dates: start: 20141231
  3. TEVA-QUETIAPINE [Suspect]
     Active Substance: QUETIAPINE
     Indication: BEHAVIOURAL AND PSYCHIATRIC SYMPTOMS OF DEMENTIA
     Dosage: THE PILL WAS ADMINISTERED AT 9:00PM
     Route: 048
     Dates: start: 20150107, end: 20150220
  4. RAMIPRIL. [Concomitant]
     Active Substance: RAMIPRIL
     Route: 048
     Dates: start: 20141207
  5. HYDROMORPHONE [Concomitant]
     Active Substance: HYDROMORPHONE
     Dosage: 6 MILLIGRAM DAILY;
     Route: 048
     Dates: start: 20150109
  6. TRAZODONE [Concomitant]
     Active Substance: TRAZODONE HYDROCHLORIDE
     Dosage: QHS
     Route: 048
     Dates: start: 20150108

REACTIONS (3)
  - Cellulitis [Unknown]
  - Mouth ulceration [Unknown]
  - Intentional product misuse [Unknown]

NARRATIVE: CASE EVENT DATE: 20150204
